FAERS Safety Report 14976449 (Version 1)
Quarter: 2018Q2

REPORT INFORMATION
  Report Type: Report from Study
  Country: ZA (occurrence: ZA)
  Receive Date: 20180605
  Receipt Date: 20180605
  Transmission Date: 20180711
  Serious: Yes (Other)
  Sender: FDA-Public Use
  Company Number: ZA-BRISTOL-MYERS SQUIBB COMPANY-BMS-2018-042037

PATIENT
  Age: 62 Year
  Sex: Female

DRUGS (1)
  1. ABATACEPT [Suspect]
     Active Substance: ABATACEPT
     Indication: RHEUMATOID ARTHRITIS
     Dosage: 125 MG, QWK
     Route: 058
     Dates: start: 20170606

REACTIONS (6)
  - Pharyngeal oedema [Unknown]
  - Spinal disorder [Unknown]
  - Dysphagia [Unknown]
  - Arthritis [Not Recovered/Not Resolved]
  - Swelling [Unknown]
  - Fatigue [Unknown]

NARRATIVE: CASE EVENT DATE: 201804
